FAERS Safety Report 10362949 (Version 3)
Quarter: 2015Q1

REPORT INFORMATION
  Report Type: Spontaneous
  Country: JP (occurrence: JP)
  Receive Date: 20140805
  Receipt Date: 20150317
  Transmission Date: 20150720
  Serious: Yes (Life-Threatening, Other)
  Sender: FDA-Public Use
  Company Number: JP-PFIZER INC-2014213824

PATIENT
  Age: 80 Year
  Sex: Female
  Weight: 35.5 kg

DRUGS (11)
  1. GENTAMICIN SULFATE. [Concomitant]
     Active Substance: GENTAMICIN SULFATE
     Indication: ENDOCARDITIS
     Dosage: UNK
     Route: 065
     Dates: start: 20140623, end: 20140710
  2. ZYVOX [Suspect]
     Active Substance: LINEZOLID
     Indication: INFECTION
     Dosage: 600 MG, 2X/DAY
     Route: 041
     Dates: start: 20140711, end: 20140725
  3. BIOFERMIN R [Concomitant]
     Active Substance: BACILLUS SUBTILIS\LACTOBACILLUS ACIDOPHILUS\STREPTOCOCCUS FAECAIS
     Route: 048
  4. MICARDIS [Suspect]
     Active Substance: TELMISARTAN
     Indication: BLOOD PRESSURE DECREASED
     Dosage: 20 MG, 1X/DAY
     Route: 048
     Dates: start: 20140701, end: 20140725
  5. FLAGYL [Suspect]
     Active Substance: METRONIDAZOLE\METRONIDAZOLE HYDROCHLORIDE
     Indication: PSEUDOMEMBRANOUS COLITIS
     Dosage: 250 MG, 4X/DAY
     Route: 048
     Dates: start: 20140710, end: 20140725
  6. UBRETID [Suspect]
     Active Substance: DISTIGMINE BROMIDE
     Indication: DYSURIA
     Dosage: 5 MG, 1X/DAY
     Route: 048
     Dates: start: 20140718, end: 20140725
  7. GASCON [Concomitant]
     Active Substance: DIMETHICONE
     Route: 048
  8. TAKEPRON OD [Concomitant]
     Active Substance: LANSOPRAZOLE
     Route: 048
  9. ASPARA [Concomitant]
     Active Substance: CALCIUM ASPARTATE
     Route: 048
  10. KEPPRA [Concomitant]
     Active Substance: LEVETIRACETAM
     Route: 048
  11. VANCOMYCIN HYDROCHLORIDE. [Concomitant]
     Active Substance: VANCOMYCIN HYDROCHLORIDE
     Indication: ENDOCARDITIS
     Dosage: UNK
     Dates: start: 20140623, end: 20140710

REACTIONS (2)
  - Electrocardiogram QT prolonged [Recovered/Resolved]
  - Torsade de pointes [Unknown]

NARRATIVE: CASE EVENT DATE: 20140725
